FAERS Safety Report 21581692 (Version 4)
Quarter: 2022Q4

REPORT INFORMATION
  Report Type: Spontaneous
  Country: FR (occurrence: FR)
  Receive Date: 20221111
  Receipt Date: 20221129
  Transmission Date: 20230112
  Serious: Yes (Other)
  Sender: FDA-Public Use
  Company Number: FR-AFSSAPS-PB20222482

PATIENT
  Age: 25 Year
  Sex: Female

DRUGS (1)
  1. ENANTONE LP [Suspect]
     Active Substance: LEUPROLIDE ACETATE
     Indication: Precocious puberty
     Dosage: 1 DOSAGE FORM, Q3MONTHS
     Route: 065
     Dates: start: 20051210, end: 20070908

REACTIONS (4)
  - Neuropsychiatric symptoms [Not Recovered/Not Resolved]
  - Educational problem [Not Recovered/Not Resolved]
  - Anxiety [Not Recovered/Not Resolved]
  - Hallucination [Not Recovered/Not Resolved]

NARRATIVE: CASE EVENT DATE: 20091101
